FAERS Safety Report 7114393-8 (Version None)
Quarter: 2010Q4

REPORT INFORMATION
  Report Type: 
  Country: None (occurrence: None)
  Receive Date: 20101119
  Receipt Date: 20101115
  Transmission Date: 20110411
  Serious: Yes (Other)
  Sender: FDA-Public Use
  Company Number: JP-PFIZER INC-2010138299

PATIENT
  Age: 75 Year
  Sex: Male

DRUGS (16)
  1. SOLU-MEDROL [Interacting]
     Indication: INTERSTITIAL LUNG DISEASE
     Dosage: 1000 MG, 1X/DAY
     Route: 042
     Dates: start: 20101009, end: 20101011
  2. SOLU-MEDROL [Interacting]
     Dosage: IT WAS TAPERED
     Dates: start: 20101012
  3. UNASYN [Suspect]
     Dosage: 1.5 G, 3X/DAY
     Route: 041
     Dates: start: 20101006, end: 20101013
  4. PREDNISOLONE [Suspect]
     Indication: INTERSTITIAL LUNG DISEASE
     Dosage: 30 MG, 2X/DAY
     Route: 048
     Dates: start: 20101012, end: 20101020
  5. PREDNISOLONE [Suspect]
     Dosage: 25 MG, 2X/DAY
     Route: 048
     Dates: start: 20101021, end: 20101027
  6. PREDNISOLONE [Suspect]
     Dosage: 20 MG, 2X/DAY
     Route: 048
     Dates: start: 20101028, end: 20101110
  7. PREDNISOLONE [Suspect]
     Dosage: 30 MG, 1X/DAY
     Route: 048
     Dates: start: 20101111
  8. AVELOX [Suspect]
     Indication: PNEUMONIA
     Dosage: 400 MG, 1X/DAY
     Route: 048
     Dates: start: 20101006, end: 20101012
  9. ETHINYL ESTRADIOL [Interacting]
     Indication: PROSTATE CANCER
     Dosage: UNK
  10. TAKEPRON [Concomitant]
     Indication: INTERSTITIAL LUNG DISEASE
     Dosage: 15 MG, 1X/DAY
     Route: 048
     Dates: start: 20101009, end: 20101023
  11. CONIEL [Concomitant]
     Indication: HYPERTENSION
     Dosage: 8 MG, 1X/DAY
     Route: 048
     Dates: start: 20070725, end: 20100524
  12. CONIEL [Concomitant]
     Dosage: 4 MG, 1X/DAY
     Route: 048
     Dates: start: 20100525
  13. BLOPRESS [Concomitant]
     Indication: HYPERTENSION
     Dosage: 8 MG, 1X/DAY
     Route: 048
     Dates: start: 20020622
  14. MYONAL [Concomitant]
     Indication: MYALGIA
     Dosage: 50 MG, 3X/DAY
     Route: 048
     Dates: start: 20070706
  15. BUFFERIN [Concomitant]
     Indication: ANGINA PECTORIS
     Dosage: 81 MG, 1X/DAY
     Route: 048
     Dates: start: 20101110
  16. VESICARE [Concomitant]
     Indication: POLLAKIURIA
     Dosage: 5 MG, 1X/DAY
     Route: 048
     Dates: start: 20100601, end: 20100801

REACTIONS (2)
  - DRUG INTERACTION [None]
  - LIVER DISORDER [None]
